FAERS Safety Report 18365213 (Version 1)
Quarter: 2020Q4

REPORT INFORMATION
  Report Type: Spontaneous
  Country: GB (occurrence: GB)
  Receive Date: 20201009
  Receipt Date: 20201009
  Transmission Date: 20210114
  Serious: Yes (Hospitalization, Other)
  Sender: FDA-Public Use
  Company Number: GB-ASPEN-GLO2020GB009693

PATIENT
  Age: 67 Year
  Sex: Male

DRUGS (2)
  1. DEXAMETHASONE. [Suspect]
     Active Substance: DEXAMETHASONE
     Indication: METASTASES TO CENTRAL NERVOUS SYSTEM
     Dosage: 8 MG, 1 DOSE 12 HOURS
     Route: 065
  2. COTRIMOXAZOLE [Suspect]
     Active Substance: SULFAMETHOXAZOLE\TRIMETHOPRIM
     Indication: NOCARDIOSIS
     Dosage: 1440 MG, QID
     Route: 042

REACTIONS (5)
  - Condition aggravated [Recovering/Resolving]
  - Cutaneous nocardiosis [Recovering/Resolving]
  - Drug ineffective [Unknown]
  - Drug titration [Unknown]
  - Brain abscess [Recovering/Resolving]

NARRATIVE: CASE EVENT DATE: 2018
